FAERS Safety Report 5819916-4 (Version None)
Quarter: 2008Q3

REPORT INFORMATION
  Report Type: 
  Country: None (occurrence: None)
  Receive Date: 20080717
  Receipt Date: 20080710
  Transmission Date: 20090109
  Serious: Yes (Death, Hospitalization)
  Sender: FDA-Public Use
  Company Number: 163-21880-08070154

PATIENT
  Age: 77 Year
  Sex: Female
  Weight: 69.3 kg

DRUGS (10)
  1. REVLIMID [Suspect]
     Indication: ACUTE MYELOID LEUKAEMIA
     Dosage: 50 MG, QD FOR MAX OF 28 DAYS, ORAL
     Route: 048
     Dates: start: 20080103, end: 20080122
  2. ACTONEL [Concomitant]
  3. ACTOS [Concomitant]
  4. ALLOPURINOL [Concomitant]
  5. AVELOX [Concomitant]
  6. BACTRIM [Concomitant]
  7. DIFLUCAN [Concomitant]
  8. PREDNISONE [Concomitant]
  9. TOPROL-XL [Concomitant]
  10. VALTREX [Concomitant]

REACTIONS (12)
  - ABDOMINAL PAIN [None]
  - ANAEMIA [None]
  - ASTHENIA [None]
  - DIARRHOEA [None]
  - DISEASE PROGRESSION [None]
  - FEBRILE NEUTROPENIA [None]
  - FUNGAL INFECTION [None]
  - GENERAL PHYSICAL HEALTH DETERIORATION [None]
  - HAEMOGLOBIN DECREASED [None]
  - HEADACHE [None]
  - RASH ERYTHEMATOUS [None]
  - RASH MACULO-PAPULAR [None]
